FAERS Safety Report 16118563 (Version 4)
Quarter: 2019Q2

REPORT INFORMATION
  Report Type: Report from Study
  Country: JP (occurrence: JP)
  Receive Date: 20190326
  Receipt Date: 20190525
  Transmission Date: 20190711
  Serious: Yes (Hospitalization)
  Sender: FDA-Public Use
  Company Number: JP-AMGEN-JPNNI2019043849

PATIENT
  Age: 43 Year
  Sex: Male
  Weight: 54 kg

DRUGS (16)
  1. AMLODIPINE [Concomitant]
     Active Substance: AMLODIPINE BESYLATE
     Dosage: 10 MILLIGRAM, QD
     Route: 048
  2. LOCHOL [FLUVASTATIN SODIUM] [Concomitant]
     Dosage: 30 MILLIGRAM, QD
  3. ACTONEL [Concomitant]
     Active Substance: RISEDRONATE SODIUM
     Indication: PROPHYLAXIS
     Dosage: 17.5 MILLIGRAM, QWK
     Route: 048
     Dates: end: 20180321
  4. DILTIAZEM HYDROCHLORIDE. [Concomitant]
     Active Substance: DILTIAZEM HYDROCHLORIDE
     Dosage: 100 MILLIGRAM, QD
     Route: 048
  5. GRACEPTOR [Concomitant]
     Active Substance: TACROLIMUS
     Dosage: 3 MILLIGRAM, QD
     Route: 048
  6. BABY ASPIRIN [Concomitant]
     Active Substance: ASPIRIN
     Dosage: 100 MILLIGRAM, QD
     Route: 048
     Dates: end: 20180807
  7. EVOLOCUMAB [Suspect]
     Active Substance: EVOLOCUMAB
     Indication: HYPERCHOLESTEROLAEMIA
     Dosage: 140 MILLIGRAM, Q2WK
     Route: 058
     Dates: start: 20180214, end: 20181210
  8. WARFARIN [WARFARIN POTASSIUM] [Concomitant]
     Dosage: 4.5 MILLIGRAM, QD
     Route: 048
  9. PREDONINE [Concomitant]
     Active Substance: PREDNISOLONE
     Dosage: UNK UNK, QD
     Route: 048
     Dates: end: 20180321
  10. REBAMIPIDE [Suspect]
     Active Substance: REBAMIPIDE
     Indication: GASTROINTESTINAL HAEMORRHAGE
     Dosage: 300 MILLIGRAM, QD
     Route: 048
     Dates: start: 20180724
  11. CELLCEPT [Concomitant]
     Active Substance: MYCOPHENOLATE MOFETIL\MYCOPHENOLATE MOFETIL HYDROCHLORIDE
     Dosage: UNK
     Route: 048
     Dates: end: 20180301
  12. TAKECAB [Suspect]
     Active Substance: VONOPRAZAN FUMURATE
     Indication: PROPHYLAXIS
     Dosage: 20 MILLIGRAM, QD
     Route: 048
  13. FLUCONAZOLE. [Concomitant]
     Active Substance: FLUCONAZOLE
     Indication: PROPHYLAXIS
     Dosage: UNK
     Route: 048
     Dates: end: 20180321
  14. CERTICAN [Concomitant]
     Active Substance: EVEROLIMUS
     Dosage: 1.5 MILLIGRAM, QD
     Route: 048
  15. BAKTAR [Concomitant]
     Active Substance: SULFAMETHOXAZOLE\TRIMETHOPRIM
     Indication: PROPHYLAXIS
     Dosage: UNK
     Route: 048
     Dates: end: 20180321
  16. BIOFERMIN [BIFIDOBACTERIUM NOS] [Concomitant]
     Indication: PROPHYLAXIS
     Dosage: UNK
     Route: 048

REACTIONS (4)
  - Anaemia [Recovering/Resolving]
  - Blood creatine phosphokinase increased [Recovered/Resolved]
  - Haemoglobin decreased [Recovering/Resolving]
  - Gastrointestinal haemorrhage [Recovering/Resolving]

NARRATIVE: CASE EVENT DATE: 20180723
